FAERS Safety Report 12210715 (Version 1)
Quarter: 2016Q1

REPORT INFORMATION
  Report Type: Spontaneous
  Country: US (occurrence: US)
  Receive Date: 20160325
  Receipt Date: 20160325
  Transmission Date: 20160526
  Serious: No
  Sender: FDA-Public Use
  Company Number: US-MALLINCKRODT-T201503114

PATIENT
  Age: 58 Year
  Sex: Female
  Weight: 77 kg

DRUGS (12)
  1. CRESTOR [Concomitant]
     Active Substance: ROSUVASTATIN CALCIUM
     Dosage: 10 MG, QD
  2. ZETIA [Concomitant]
     Active Substance: EZETIMIBE
     Dosage: 10 MG, QD
  3. FENTANYL. [Concomitant]
     Active Substance: FENTANYL
     Dosage: 50 UG/HR, Q 72 HOURS
  4. TOFRANIL [Concomitant]
     Active Substance: IMIPRAMINE HYDROCHLORIDE
     Dosage: 75 MG, QD
  5. ASA [Concomitant]
     Active Substance: ASPIRIN
     Dosage: 81 MG, QD
  6. RITALIN [Concomitant]
     Active Substance: METHYLPHENIDATE HYDROCHLORIDE
     Dosage: 25 MG, QD
  7. VALTREX [Concomitant]
     Active Substance: VALACYCLOVIR HYDROCHLORIDE
     Dosage: 1000 MG, QD
  8. METHADONE [Suspect]
     Active Substance: METHADONE HYDROCHLORIDE
     Indication: NEURALGIA
     Dosage: 1 DF, QD
     Route: 048
     Dates: start: 201505
  9. SINGULAIR [Concomitant]
     Active Substance: MONTELUKAST SODIUM
     Dosage: 10 MG, QD
  10. METHADONE [Suspect]
     Active Substance: METHADONE HYDROCHLORIDE
     Dosage: 1 DF, BID
     Route: 048
     Dates: start: 20150608
  11. BACLOFEN. [Concomitant]
     Active Substance: BACLOFEN
     Dosage: 60 MG, QD
  12. TENORMIN [Concomitant]
     Active Substance: ATENOLOL
     Dosage: 25 MG, QD

REACTIONS (3)
  - Eyelid oedema [Not Recovered/Not Resolved]
  - Intentional product use issue [Recovered/Resolved]
  - Drug effect decreased [Recovered/Resolved]

NARRATIVE: CASE EVENT DATE: 201505
